FAERS Safety Report 23428883 (Version 1)
Quarter: 2024Q1

REPORT INFORMATION
  Report Type: Spontaneous
  Country: EG (occurrence: EG)
  Receive Date: 20240122
  Receipt Date: 20240122
  Transmission Date: 20240410
  Serious: Yes (Death)
  Sender: FDA-Public Use
  Company Number: EG-PFIZER INC-PV202400005861

PATIENT
  Age: 71 Year
  Sex: Male

DRUGS (3)
  1. SUTENT [Suspect]
     Active Substance: SUNITINIB MALATE
     Indication: Metastatic renal cell carcinoma
     Dosage: 50 MG, 1 DF ONE TAB EVERY DAY FOR 4 WEEKS ON AND 2 WEEKS OFF
     Dates: start: 20220911
  2. FEBUXOSTAT [Concomitant]
     Active Substance: FEBUXOSTAT
     Dosage: 80 MG, (1 DF) DAILY
  3. UROSOLVINE [Concomitant]
     Dosage: 1 DF, 3X/DAY

REACTIONS (1)
  - Death [Fatal]
